FAERS Safety Report 5561029-3 (Version None)
Quarter: 2007Q4

REPORT INFORMATION
  Report Type: 
  Country: None (occurrence: None)
  Receive Date: 20071215
  Receipt Date: 20071126
  Transmission Date: 20080405
  Serious: No
  Sender: FDA-Public Use
  Company Number: US-ABBOTT-07P-163-0426956-00

PATIENT
  Sex: Male
  Weight: 74.91 kg

DRUGS (2)
  1. HUMIRA [Suspect]
     Indication: CROHN'S DISEASE
     Dosage: 160MG STARTER DOSE, THEN 80MG X1, AND THEN 40MG EVERY OTHER WEEK
     Route: 058
     Dates: start: 20071031
  2. UNKNOWN BLOOD PRESSURE PILL [Concomitant]
     Indication: HYPERTENSION
     Route: 048

REACTIONS (4)
  - NASOPHARYNGITIS [None]
  - PRURITUS GENERALISED [None]
  - RASH GENERALISED [None]
  - SKIN BURNING SENSATION [None]
